FAERS Safety Report 25008653 (Version 1)
Quarter: 2025Q1

REPORT INFORMATION
  Report Type: Other
  Country: RS (occurrence: RS)
  Receive Date: 20250225
  Receipt Date: 20250225
  Transmission Date: 20250409
  Serious: Yes (Death, Hospitalization, Other)
  Sender: ANI
  Company Number: RS-ANIPHARMA-015722

PATIENT
  Age: 54 Year
  Sex: Female

DRUGS (7)
  1. CYCLOPHOSPHAMIDE [Suspect]
     Active Substance: CYCLOPHOSPHAMIDE
     Indication: Blastic plasmacytoid dendritic cell neoplasia
  2. VINCRISTINE [Concomitant]
     Active Substance: VINCRISTINE
     Indication: Blastic plasmacytoid dendritic cell neoplasia
  3. DOXORUBICIN [Concomitant]
     Active Substance: DOXORUBICIN
     Indication: Blastic plasmacytoid dendritic cell neoplasia
  4. DEXAMETHASONE [Concomitant]
     Active Substance: DEXAMETHASONE
     Indication: Blastic plasmacytoid dendritic cell neoplasia
  5. CYTARABINE [Concomitant]
     Active Substance: CYTARABINE
     Indication: Blastic plasmacytoid dendritic cell neoplasia
     Route: 037
  6. METHOTREXATE [Concomitant]
     Active Substance: METHOTREXATE
     Indication: Blastic plasmacytoid dendritic cell neoplasia
  7. METHYLPREDNISOLONE [Concomitant]
     Active Substance: METHYLPREDNISOLONE
     Indication: Blastic plasmacytoid dendritic cell neoplasia

REACTIONS (2)
  - Agranulocytosis [Fatal]
  - COVID-19 [Fatal]
